FAERS Safety Report 25810233 (Version 3)
Quarter: 2025Q4

REPORT INFORMATION
  Report Type: Spontaneous
  Country: US (occurrence: US)
  Receive Date: 20250917
  Receipt Date: 20251111
  Transmission Date: 20260118
  Serious: Yes (Hospitalization, Other)
  Sender: SANOFI AVENTIS
  Company Number: US-SA-2025SA274771

PATIENT
  Sex: Female

DRUGS (3)
  1. DUPIXENT [Suspect]
     Active Substance: DUPILUMAB
     Indication: Eczema
     Dosage: 600 MG, 1X
     Route: 058
     Dates: start: 202410, end: 202410
  2. DUPIXENT [Suspect]
     Active Substance: DUPILUMAB
     Dosage: 300 MG, QOW
     Route: 058
     Dates: start: 2024
  3. RINVOQ [Concomitant]
     Active Substance: UPADACITINIB
     Dosage: UNK

REACTIONS (17)
  - Chest pain [Unknown]
  - Candida infection [Unknown]
  - Pyrexia [Unknown]
  - Sepsis [Unknown]
  - Fungal infection [Unknown]
  - Bacterial infection [Unknown]
  - Syncope [Unknown]
  - Headache [Unknown]
  - Arthralgia [Unknown]
  - Pain [Unknown]
  - Dry throat [Unknown]
  - Rebound eczema [Unknown]
  - Erythema [Unknown]
  - Pruritus [Unknown]
  - Hiatus hernia [Unknown]
  - Helicobacter infection [Unknown]
  - Product storage error [Unknown]
